FAERS Safety Report 5194590-1 (Version None)
Quarter: 2006Q4

REPORT INFORMATION
  Report Type: 
  Country: None (occurrence: None)
  Receive Date: 20061229
  Receipt Date: 20061219
  Transmission Date: 20070319
  Serious: Yes (Hospitalization)
  Sender: FDA-Public Use
  Company Number: JP-JNJFOC-20051103824

PATIENT
  Sex: Female
  Weight: 40 kg

DRUGS (7)
  1. REMICADE [Suspect]
     Indication: CROHN'S DISEASE
     Route: 042
  2. PENTASA [Concomitant]
     Indication: CROHN'S DISEASE
     Route: 048
  3. GASTER D [Concomitant]
     Route: 048
  4. ONEALFA [Concomitant]
     Route: 048
  5. EBRANTIL [Concomitant]
     Route: 048
  6. COLONEL [Concomitant]
     Route: 048
  7. LAC-B [Concomitant]
     Route: 048

REACTIONS (1)
  - ANAL CANCER [None]
